FAERS Safety Report 6860418-4 (Version None)
Quarter: 2010Q3

REPORT INFORMATION
  Report Type: 
  Country: None (occurrence: None)
  Receive Date: 20100720
  Receipt Date: 20100715
  Transmission Date: 20110219
  Serious: Yes (Death, Life-Threatening)
  Sender: FDA-Public Use
  Company Number: GB-ROCHE-710640

PATIENT
  Sex: Female
  Weight: 50.4 kg

DRUGS (2)
  1. XELODA [Suspect]
     Route: 048
     Dates: start: 20100419, end: 20100421
  2. BECLOMETHASONE DIPROPIONATE [Concomitant]
     Indication: ASTHMA
     Route: 055

REACTIONS (2)
  - DIABETIC KETOACIDOSIS [None]
  - NEUTROPENIC SEPSIS [None]
